FAERS Safety Report 7762090-8 (Version None)
Quarter: 2011Q3

REPORT INFORMATION
  Report Type: 
  Country: None (occurrence: None)
  Receive Date: 20110920
  Receipt Date: 20110920
  Transmission Date: 20111222
  Serious: Yes (Disabling, Other)
  Sender: FDA-Public Use
  Company Number: None

PATIENT
  Age: 53 Year
  Sex: Female
  Weight: 79.378 kg

DRUGS (2)
  1. LYRICA [Suspect]
     Indication: NEURALGIA
     Dosage: TWO 75MG CAPSULE
     Route: 048
     Dates: start: 20110301, end: 20110901
  2. LYRICA [Suspect]
     Indication: INTERVERTEBRAL DISC DEGENERATION
     Dosage: TWO 75MG CAPSULE
     Route: 048
     Dates: start: 20110301, end: 20110901

REACTIONS (10)
  - ALOPECIA [None]
  - CRYING [None]
  - ABNORMAL LOSS OF WEIGHT [None]
  - COLD SWEAT [None]
  - NAUSEA [None]
  - SUICIDAL IDEATION [None]
  - TREMOR [None]
  - DEPRESSION [None]
  - DIARRHOEA [None]
  - HEADACHE [None]
